FAERS Safety Report 11317591 (Version 4)
Quarter: 2016Q2

REPORT INFORMATION
  Report Type: Other
  Country: GB (occurrence: GB)
  Receive Date: 20150728
  Receipt Date: 20160419
  Transmission Date: 20160815
  Serious: Yes (Other)
  Sender: FDA-Public Use
  Company Number: GB-MYLANLABS-2015M1024215

PATIENT

DRUGS (2)
  1. CISPLATIN. [Suspect]
     Active Substance: CISPLATIN
     Indication: PRODUCT USED FOR UNKNOWN INDICATION
     Dosage: UNK
     Route: 065
     Dates: start: 201310
  2. HERCEPTIN [Suspect]
     Active Substance: TRASTUZUMAB
     Indication: OESOPHAGEAL CANCER METASTATIC
     Dosage: 504 MG, UNK, CYCLE 30
     Route: 042

REACTIONS (15)
  - Sleep disorder [Unknown]
  - Neuropathy peripheral [Not Recovered/Not Resolved]
  - Headache [Unknown]
  - Fatigue [Unknown]
  - Ovarian disorder [Unknown]
  - Dry skin [Unknown]
  - Nasopharyngitis [Unknown]
  - Diarrhoea [Recovered/Resolved]
  - Deafness [Unknown]
  - Sleep disorder [Not Recovered/Not Resolved]
  - Tinnitus [Unknown]
  - Asthenia [Unknown]
  - Vomiting [Recovered/Resolved]
  - Sensory disturbance [Unknown]
  - Paraesthesia [Not Recovered/Not Resolved]
